FAERS Safety Report 5169009-7 (Version None)
Quarter: 2006Q4

REPORT INFORMATION
  Report Type: 
  Country: None (occurrence: None)
  Receive Date: 20061204
  Receipt Date: 20061121
  Transmission Date: 20070319
  Serious: Yes (Life-Threatening, Hospitalization)
  Sender: FDA-Public Use
  Company Number: GXKR2006US07522

PATIENT
  Age: 50 Year
  Sex: Female

DRUGS (8)
  1. METHADONE HCL [Suspect]
     Indication: DRUG ABUSER
     Dosage: SEE IMAGE
  2. ALPRAZOLAM [Suspect]
     Indication: ANXIETY
  3. TRAZODONE (NGX) (TRAZODONE) [Suspect]
     Indication: SLEEP DISORDER
  4. COCAINE (COCAINE) [Suspect]
     Indication: DRUG ABUSER
  5. TENOFOVIR (TENOFOVIR) [Concomitant]
  6. ABACAVIR [Concomitant]
  7. LAMIVUDINE [Concomitant]
  8. ZIDOVUDINE [Concomitant]

REACTIONS (10)
  - BLOOD MAGNESIUM DECREASED [None]
  - BLOOD MAGNESIUM INCREASED [None]
  - BLOOD POTASSIUM DECREASED [None]
  - DRUG ABUSER [None]
  - DRUG INTERACTION [None]
  - ELECTROCARDIOGRAM QT PROLONGED [None]
  - HYPERHIDROSIS [None]
  - LOSS OF CONSCIOUSNESS [None]
  - TORSADE DE POINTES [None]
  - TREMOR [None]
